FAERS Safety Report 7478345-0 (Version None)
Quarter: 2011Q2

REPORT INFORMATION
  Report Type: 
  Country: None (occurrence: None)
  Receive Date: 20110513
  Receipt Date: 20110504
  Transmission Date: 20111010
  Serious: Yes (Hospitalization)
  Sender: FDA-Public Use
  Company Number: ES-JNJFOC-20110107768

PATIENT
  Sex: Female
  Weight: 53 kg

DRUGS (4)
  1. DEPAKENE [Concomitant]
     Indication: PRODUCT USED FOR UNKNOWN INDICATION
     Route: 065
  2. NORVIR [Suspect]
     Indication: HIV INFECTION
     Route: 048
  3. PREZISTA [Suspect]
     Indication: HIV INFECTION
     Route: 048
  4. TRUVADA [Suspect]
     Indication: HIV INFECTION
     Route: 048

REACTIONS (2)
  - OLIGOHYDRAMNIOS [None]
  - DRUG EXPOSURE DURING PREGNANCY [None]
